FAERS Safety Report 25599544 (Version 1)
Quarter: 2025Q3

REPORT INFORMATION
  Report Type: Spontaneous
  Country: US (occurrence: US)
  Receive Date: 20250724
  Receipt Date: 20250724
  Transmission Date: 20251020
  Serious: Yes (Hospitalization, Other)
  Sender: EXELA PHARMA SCIENCES
  Company Number: US-EXELAPHARMA-2025EXLA00131

PATIENT
  Age: 12 Month
  Sex: Female

DRUGS (1)
  1. FENTANYL CITRATE [Suspect]
     Active Substance: FENTANYL CITRATE
     Indication: Product used for unknown indication

REACTIONS (21)
  - Hypertransaminasaemia [Recovered/Resolved]
  - Leukoencephalopathy [Recovered/Resolved]
  - Unresponsive to stimuli [Recovered/Resolved]
  - Hypothermia [Recovered/Resolved]
  - Blood glucose abnormal [Recovered/Resolved]
  - Moaning [Recovered/Resolved]
  - Grunting [Recovered/Resolved]
  - Miosis [Recovered/Resolved]
  - Mental status changes [Recovered/Resolved]
  - Metabolic acidosis [Recovered/Resolved]
  - Pyrexia [Recovered/Resolved]
  - Acute kidney injury [Recovered/Resolved]
  - Toxicity to various agents [Recovered/Resolved]
  - Pulmonary oedema [Recovered/Resolved]
  - Intramyelinic oedema [Recovered/Resolved]
  - International normalised ratio increased [Recovering/Resolving]
  - Hypoventilation [Recovered/Resolved]
  - Acute respiratory failure [Recovered/Resolved]
  - Bradycardia [Recovered/Resolved]
  - Hypoxia [Recovered/Resolved]
  - Accidental exposure to product by child [Recovered/Resolved]
